FAERS Safety Report 7524479-1 (Version None)
Quarter: 2011Q2

REPORT INFORMATION
  Report Type: 
  Country: None (occurrence: None)
  Receive Date: 20110606
  Receipt Date: 20110128
  Transmission Date: 20111010
  Serious: Yes (Hospitalization, Other)
  Sender: FDA-Public Use
  Company Number: US-BAYER-201020677NA

PATIENT
  Age: 30 Year
  Sex: Female
  Weight: 79.091 kg

DRUGS (5)
  1. IBUPROFEN [Concomitant]
  2. YASMIN [Suspect]
     Indication: CONTRACEPTION
     Route: 048
     Dates: start: 20070401, end: 20070701
  3. ZOVIA 1/35E-21 [Concomitant]
     Indication: CONTRACEPTION
     Dates: start: 20070701
  4. ACETAMINOPHEN [Concomitant]
  5. YASMIN [Suspect]
     Indication: PREMENSTRUAL SYNDROME

REACTIONS (8)
  - NAUSEA [None]
  - PLEURITIC PAIN [None]
  - PULMONARY EMBOLISM [None]
  - GALLBLADDER CHOLESTEROLOSIS [None]
  - PLEURAL EFFUSION [None]
  - ABDOMINAL TENDERNESS [None]
  - VOMITING [None]
  - DYSPNOEA [None]
